FAERS Safety Report 9380211 (Version 2)
Quarter: 2013Q3

REPORT INFORMATION
  Report Type: Spontaneous
  Country: JP (occurrence: JP)
  Receive Date: 20130702
  Receipt Date: 20130719
  Transmission Date: 20140515
  Serious: Yes (Life-Threatening)
  Sender: FDA-Public Use
  Company Number: JP-009507513-1306JPN012004

PATIENT
  Age: 79 Year
  Sex: Male

DRUGS (4)
  1. THERAPY UNSPECIFIED [Suspect]
     Dosage: UNK UNK, TID
  2. ALMETA [Suspect]
     Indication: ECZEMA
     Dosage: TOTAL STEROID DOSE ABOUT 20 MG/D, SPECIFIC DOSE NOT INDICATED
     Route: 061
     Dates: start: 201106, end: 201110
  3. DERMOVATE [Suspect]
     Indication: ECZEMA
     Dosage: TOTAL STEROID DOSE ABOUT 20 MG/D, SPECIFIC DOSE NOT INDICATED
     Route: 061
     Dates: start: 201106, end: 201110
  4. ANTEBATE [Suspect]
     Indication: ECZEMA
     Dosage: UNK
     Route: 061
     Dates: start: 201106, end: 201110

REACTIONS (2)
  - Hypoglycaemia [Recovered/Resolved]
  - Secondary adrenocortical insufficiency [Recovered/Resolved]
